FAERS Safety Report 7110142-8 (Version None)
Quarter: 2010Q4

REPORT INFORMATION
  Report Type: 
  Country: None (occurrence: None)
  Receive Date: 20101118
  Receipt Date: 20101112
  Transmission Date: 20110411
  Serious: Yes (Hospitalization)
  Sender: FDA-Public Use
  Company Number: ES-PFIZER INC-2010147813

PATIENT
  Age: 82 Year
  Sex: Male

DRUGS (8)
  1. CARDYL [Suspect]
     Indication: ACUTE CORONARY SYNDROME
     Dosage: 80 MG, 1X/DAY
     Route: 048
     Dates: start: 20100706, end: 20100712
  2. NORVASC [Interacting]
     Indication: ANGINA PECTORIS
     Dosage: 10 MG, 1X/DAY
     Route: 048
     Dates: start: 20100706, end: 20100730
  3. ASPIRIN [Interacting]
     Indication: ACUTE CORONARY SYNDROME
     Dosage: 100 MG, 1X/DAY
     Route: 048
     Dates: start: 20100706
  4. PLAVIX [Interacting]
     Indication: ACUTE CORONARY SYNDROME
     Dosage: 75 MG, 1X/DAY
     Route: 048
     Dates: start: 20100709, end: 20100714
  5. UNIKET [Interacting]
     Indication: ACUTE CORONARY SYNDROME
     Dosage: 80 MG, 1X/DAY
     Route: 048
     Dates: start: 20100706, end: 20100713
  6. TENORMIN [Interacting]
     Dosage: 50 MG, 1X/DAY
     Route: 048
     Dates: start: 20100706
  7. DISTRANEURINE [Interacting]
     Indication: AGITATION
     Dosage: UNK
     Route: 048
     Dates: start: 20100706, end: 20100707
  8. PANTOPRAZOLE [Interacting]
     Indication: PROPHYLAXIS AGAINST GASTROINTESTINAL ULCER
     Dosage: 40 MG, 1X/DAY
     Route: 048
     Dates: start: 20100709

REACTIONS (2)
  - DRUG INTERACTION [None]
  - HEPATITIS CHOLESTATIC [None]
